FAERS Safety Report 9261557 (Version 1)
Quarter: 2013Q2

REPORT INFORMATION
  Report Type: Spontaneous
  Country: US (occurrence: US)
  Receive Date: 20130429
  Receipt Date: 20130429
  Transmission Date: 20140414
  Serious: Yes (Hospitalization)
  Sender: FDA-Public Use
  Company Number: US-PFIZER INC-2013128091

PATIENT
  Age: 53 Year
  Sex: Male

DRUGS (5)
  1. NEURONTIN [Suspect]
     Dosage: 300 MG, 2X/DAY
     Route: 048
  2. KEPPRA [Concomitant]
     Dosage: UNK
  3. COLCHICINE [Concomitant]
     Dosage: UNK
  4. FAMOTIDINE [Concomitant]
     Dosage: UNK
  5. CITALOPRAM [Concomitant]
     Dosage: UNK

REACTIONS (2)
  - Cerebrovascular accident [Unknown]
  - Aneurysm [Unknown]
